FAERS Safety Report 15351049 (Version 1)
Quarter: 2018Q3

REPORT INFORMATION
  Report Type: Spontaneous
  Country: US (occurrence: US)
  Receive Date: 20180905
  Receipt Date: 20180905
  Transmission Date: 20181010
  Serious: No
  Sender: FDA-Public Use
  Company Number: US-BAUSCH-BL-2018-023634

PATIENT
  Sex: Male
  Weight: 113.5 kg

DRUGS (2)
  1. LUMIFY [Suspect]
     Active Substance: BRIMONIDINE TARTRATE
     Dosage: ONE DROP IN EACH EYE EVERY OTHER DAY
     Route: 047
     Dates: start: 201808
  2. LUMIFY [Suspect]
     Active Substance: BRIMONIDINE TARTRATE
     Indication: OCULAR HYPERAEMIA
     Dosage: ONE TO TWO DROPS IN EACH EYE ONCE DAILY
     Route: 047
     Dates: start: 201807, end: 201808

REACTIONS (4)
  - Chest discomfort [Not Recovered/Not Resolved]
  - Affective disorder [Not Recovered/Not Resolved]
  - Headache [Not Recovered/Not Resolved]
  - Respiration abnormal [Not Recovered/Not Resolved]

NARRATIVE: CASE EVENT DATE: 2018
